FAERS Safety Report 24133400 (Version 1)
Quarter: 2024Q3

REPORT INFORMATION
  Report Type: Spontaneous
  Country: US (occurrence: US)
  Receive Date: 20240724
  Receipt Date: 20240724
  Transmission Date: 20241016
  Serious: Yes (Other)
  Sender: GLAXOSMITHKLINE
  Company Number: US-GLAXOSMITHKLINE-US2024090130

PATIENT

DRUGS (1)
  1. BENLYSTA [Suspect]
     Active Substance: BELIMUMAB
     Indication: Product used for unknown indication
     Dosage: UNK, WE
     Dates: start: 2018

REACTIONS (3)
  - Sjogren^s syndrome [Not Recovered/Not Resolved]
  - Systemic lupus erythematosus [Unknown]
  - Dry eye [Not Recovered/Not Resolved]
